FAERS Safety Report 5504313-1 (Version None)
Quarter: 2007Q4

REPORT INFORMATION
  Report Type: 
  Country: None (occurrence: None)
  Receive Date: 20071101
  Receipt Date: 20071022
  Transmission Date: 20080405
  Serious: Yes (Hospitalization)
  Sender: FDA-Public Use
  Company Number: NL-WYE-H00877707

PATIENT
  Age: 29 Year
  Sex: Male

DRUGS (2)
  1. EFFEXOR [Suspect]
     Dosage: OVERDOSE AMOUNT 22.5 G
  2. OXAZEPAM [Suspect]
     Dosage: OVERDOSE AMOUNT 5.0 G

REACTIONS (5)
  - HYPOGLYCAEMIA [None]
  - INTENTIONAL OVERDOSE [None]
  - PNEUMONIA ASPIRATION [None]
  - RHABDOMYOLYSIS [None]
  - SEROTONIN SYNDROME [None]
